FAERS Safety Report 12728817 (Version 1)
Quarter: 2016Q3

REPORT INFORMATION
  Report Type: Spontaneous
  Country: JP (occurrence: JP)
  Receive Date: 20160909
  Receipt Date: 20160909
  Transmission Date: 20161109
  Serious: Yes (Hospitalization)
  Sender: FDA-Public Use
  Company Number: JP-ELI_LILLY_AND_COMPANY-JP201608004997

PATIENT
  Age: 58 Year
  Sex: Male

DRUGS (13)
  1. LASIX [Concomitant]
     Active Substance: FUROSEMIDE
     Indication: HYPERLIPIDAEMIA
     Dosage: 80 MG, QD
     Route: 048
     Dates: start: 20130818
  2. LASIX [Concomitant]
     Active Substance: FUROSEMIDE
     Indication: HYPERTENSION
  3. ALLEGRA [Concomitant]
     Active Substance: FEXOFENADINE HYDROCHLORIDE
     Indication: EOSINOPHILIA
     Dosage: 60 MG, BID
     Route: 048
     Dates: start: 2013
  4. CARTAN                             /00878602/ [Concomitant]
     Indication: HYPERPHOSPHATAEMIA
     Dosage: 1000 MG, BID
     Route: 048
     Dates: start: 2013
  5. ARGAMATE [Concomitant]
     Active Substance: CALCIUM POLYSTYRENE SULFONATE
     Indication: HYPERKALAEMIA
     Dosage: 25 G, BID
     Route: 048
     Dates: start: 2013
  6. BAYASPIRIN [Concomitant]
     Active Substance: ASPIRIN
     Dosage: 100 MG, EACH MORNING
     Route: 048
     Dates: start: 2013
  7. MICARDIS [Concomitant]
     Active Substance: TELMISARTAN
     Dosage: 80 MG, EACH MORNING
     Route: 048
     Dates: start: 2013
  8. MEVALOTIN [Concomitant]
     Active Substance: PRAVASTATIN SODIUM
     Dosage: 5 MG, EACH MORNING
     Route: 048
     Dates: start: 2013
  9. LASIX [Concomitant]
     Active Substance: FUROSEMIDE
     Indication: ANGINA PECTORIS
  10. PLAVIX [Concomitant]
     Active Substance: CLOPIDOGREL BISULFATE
     Dosage: 75 MG, EACH MORNING
     Route: 048
     Dates: start: 2013
  11. TRULICITY [Suspect]
     Active Substance: DULAGLUTIDE
     Indication: DIABETES MELLITUS
     Dosage: 0.75 MG, WEEKLY (1/W)
     Route: 058
     Dates: start: 20160411, end: 201607
  12. ADALAT [Concomitant]
     Active Substance: NIFEDIPINE
     Indication: HYPERTENSION
     Dosage: 20 MG, EACH EVENING
     Route: 048
     Dates: start: 2013
  13. CARDENALIN [Concomitant]
     Active Substance: DOXAZOSIN MESYLATE
     Dosage: 2 MG, EACH MORNING
     Route: 048
     Dates: start: 2013

REACTIONS (2)
  - Abdominal pain lower [Recovered/Resolved]
  - Appendicitis [Recovered/Resolved]

NARRATIVE: CASE EVENT DATE: 20160714
